FAERS Safety Report 16353705 (Version 4)
Quarter: 2019Q3

REPORT INFORMATION
  Report Type: Spontaneous
  Country: CZ (occurrence: CZ)
  Receive Date: 20190524
  Receipt Date: 20190729
  Transmission Date: 20191004
  Serious: Yes (Life-Threatening, Other)
  Sender: FDA-Public Use
  Company Number: CZ-PFIZER INC-2019214044

PATIENT
  Age: 53 Year
  Sex: Male

DRUGS (4)
  1. PAZOPANIB [Suspect]
     Active Substance: PAZOPANIB
     Dosage: 600 MG, QD
     Route: 065
     Dates: end: 201903
  2. DOXORUBICIN HCL [Suspect]
     Active Substance: DOXORUBICIN HYDROCHLORIDE
     Indication: RETROPERITONEAL CANCER
     Dosage: 150 MG, UNK
     Route: 065
     Dates: start: 201610, end: 201612
  3. PAZOPANIB [Suspect]
     Active Substance: PAZOPANIB
     Indication: RETROPERITONEAL CANCER
     Dosage: 800 MG, QD
     Route: 065
     Dates: start: 201703
  4. IFOSFAMIDE. [Suspect]
     Active Substance: IFOSFAMIDE
     Indication: RETROPERITONEAL CANCER
     Dosage: DOSE REDUCTION BY 25%
     Route: 065

REACTIONS (6)
  - Anaemia [Recovered/Resolved]
  - Second primary malignancy [Recovered/Resolved]
  - Diarrhoea [Recovered/Resolved]
  - Myelodysplastic syndrome [Recovered/Resolved]
  - Thrombocytosis [Recovered/Resolved]
  - Neoplasm progression [Recovering/Resolving]

NARRATIVE: CASE EVENT DATE: 201612
